FAERS Safety Report 5902505-0 (Version None)
Quarter: 2008Q3

REPORT INFORMATION
  Report Type: 
  Country: None (occurrence: None)
  Receive Date: 20080925
  Receipt Date: 20080922
  Transmission Date: 20090109
  Serious: Yes (Life-Threatening, Hospitalization, Disabling)
  Sender: FDA-Public Use
  Company Number: SP01272

PATIENT
  Age: 45 Year
  Sex: Female
  Weight: 58.9676 kg

DRUGS (7)
  1. OSMOPREP [Suspect]
     Indication: BOWEL PREPARATION
     Dosage: ORAL
     Route: 048
     Dates: start: 20070523, end: 20070524
  2. OSMOPREP [Suspect]
     Indication: COLONOSCOPY
     Dosage: ORAL
     Route: 048
     Dates: start: 20070523, end: 20070524
  3. SKELAXIN [Concomitant]
  4. URSODIOL [Concomitant]
  5. PRILOSEC [Concomitant]
  6. ALPRAZOLAM [Concomitant]
  7. SERTRALINE [Concomitant]

REACTIONS (3)
  - HYPOAESTHESIA [None]
  - PARAESTHESIA [None]
  - RENAL FAILURE ACUTE [None]
